FAERS Safety Report 9207304 (Version 1)
Quarter: 2013Q2

REPORT INFORMATION
  Report Type: Spontaneous
  Country: US (occurrence: None)
  Receive Date: 20130402
  Receipt Date: 20130402
  Transmission Date: 20140414
  Serious: No
  Sender: FDA-Public Use
  Company Number: None

PATIENT
  Age: 14 Year
  Sex: Male

DRUGS (1)
  1. ENBREL 50 MG [Suspect]
     Indication: PSORIASIS
     Route: 058
     Dates: start: 20130219, end: 20130228

REACTIONS (7)
  - Pyrexia [None]
  - Abdominal pain upper [None]
  - Unevaluable event [None]
  - Injection site rash [None]
  - Decreased appetite [None]
  - Fatigue [None]
  - Lethargy [None]
